FAERS Safety Report 8277310-3 (Version None)
Quarter: 2012Q2

REPORT INFORMATION
  Report Type: 
  Country: None (occurrence: None)
  Receive Date: 20120412
  Receipt Date: 20120403
  Transmission Date: 20120825
  Serious: Yes (Hospitalization)
  Sender: FDA-Public Use
  Company Number: JP-GLAXOSMITHKLINE-B0787540A

PATIENT
  Sex: Female
  Weight: 60 kg

DRUGS (2)
  1. WARFARIN SODIUM [Suspect]
     Indication: PRODUCT USED FOR UNKNOWN INDICATION
     Dosage: 3MG PER DAY
     Route: 048
     Dates: start: 20120224, end: 20120301
  2. ARIXTRA [Suspect]
     Indication: DEEP VEIN THROMBOSIS
     Dosage: 7.5MG PER DAY
     Route: 058
     Dates: start: 20120224, end: 20120301

REACTIONS (1)
  - MUSCLE HAEMORRHAGE [None]
